FAERS Safety Report 6603878-6 (Version None)
Quarter: 2010Q1

REPORT INFORMATION
  Report Type: 
  Country: None (occurrence: None)
  Receive Date: 20100226
  Receipt Date: 20090303
  Transmission Date: 20100710
  Serious: No
  Sender: FDA-Public Use
  Company Number: A0771356A

PATIENT
  Age: 64 Year
  Sex: Male

DRUGS (9)
  1. LAMICTAL CD [Suspect]
     Indication: BIPOLAR DISORDER
     Dosage: 100MG PER DAY
     Route: 048
     Dates: start: 20040101
  2. HUMALOG [Concomitant]
  3. LANTUS [Concomitant]
  4. GABAPENTIN [Concomitant]
  5. AMBIEN CR [Concomitant]
  6. PLAVIX [Concomitant]
  7. LEVOTHYROXINE [Concomitant]
  8. AMITRIPTYLINE HCL [Concomitant]
  9. LYRICA [Concomitant]

REACTIONS (1)
  - DRUG INEFFECTIVE [None]
